FAERS Safety Report 22000824 (Version 1)
Quarter: 2023Q1

REPORT INFORMATION
  Report Type: Spontaneous
  Country: GB (occurrence: GB)
  Receive Date: 20230216
  Receipt Date: 20230216
  Transmission Date: 20230417
  Serious: Yes (Other)
  Sender: FDA-Public Use
  Company Number: None

PATIENT
  Age: 54 Year
  Sex: Male
  Weight: 95 kg

DRUGS (8)
  1. PAXLOVID [Suspect]
     Active Substance: NIRMATRELVIR\RITONAVIR
     Indication: COVID-19 treatment
     Dosage: UNK
     Dates: start: 20221219
  2. BISOPROLOL [Concomitant]
     Active Substance: BISOPROLOL
     Indication: Ventricular tachycardia
  3. CANDESARTAN [Concomitant]
     Active Substance: CANDESARTAN
     Indication: Cardiac sarcoidosis
  4. FOLIC ACID [Concomitant]
     Active Substance: FOLIC ACID
  5. LANSOPRAZOLE [Concomitant]
     Active Substance: LANSOPRAZOLE
  6. METHOTREXATE [Concomitant]
     Active Substance: METHOTREXATE
     Indication: Cardiac sarcoidosis
  7. PREDNISOLONE [Concomitant]
     Active Substance: PREDNISOLONE
     Indication: Cardiac sarcoidosis
  8. SERTRALINE [Concomitant]
     Active Substance: SERTRALINE HYDROCHLORIDE
     Indication: Depression

REACTIONS (2)
  - Epididymitis [Recovered/Resolved]
  - Orchitis [Unknown]

NARRATIVE: CASE EVENT DATE: 20221221
